FAERS Safety Report 7552872-X (Version None)
Quarter: 2011Q2

REPORT INFORMATION
  Report Type: 
  Country: None (occurrence: None)
  Receive Date: 20110616
  Receipt Date: 20110603
  Transmission Date: 20111010
  Serious: Yes (Death)
  Sender: FDA-Public Use
  Company Number: US-GENENTECH-317725

PATIENT
  Sex: Male
  Weight: 86 kg

DRUGS (8)
  1. BLINDED RANIBIZUMAB [Suspect]
     Indication: DIABETIC RETINAL OEDEMA
     Dosage: UNK
     Route: 031
     Dates: start: 20080214, end: 20110426
  2. FUROSEMIDE [Concomitant]
     Indication: HYPERTENSION
     Dosage: UNK
     Dates: start: 20071101
  3. ZYMAXID [Concomitant]
     Indication: VITRECTOMY
     Dosage: UNK
     Dates: start: 20101222
  4. TOBREX [Concomitant]
     Indication: CORNEAL ABRASION
     Dosage: UNK
     Dates: start: 20110103
  5. PRED FORTE [Concomitant]
     Indication: VITRECTOMY
     Dosage: UNK
     Dates: start: 20101222
  6. GLYBURIDE [Concomitant]
     Indication: DIABETES MELLITUS
     Dosage: UNK
     Dates: start: 20050101
  7. PLACEBO [Suspect]
     Indication: DIABETIC RETINAL OEDEMA
     Dosage: UNK
     Route: 031
     Dates: start: 20080214, end: 20110426
  8. LUCENTIS [Suspect]
     Indication: MACULAR OEDEMA
     Dosage: UNK
     Dates: start: 20100308, end: 20100308

REACTIONS (1)
  - ARTERIOSCLEROSIS [None]
